FAERS Safety Report 6668625-0 (Version None)
Quarter: 2010Q2

REPORT INFORMATION
  Report Type: 
  Country: None (occurrence: None)
  Receive Date: 20100406
  Receipt Date: 20100331
  Transmission Date: 20101027
  Serious: Yes (Death, Hospitalization)
  Sender: FDA-Public Use
  Company Number: PHHY2010TR20459

PATIENT
  Sex: Male

DRUGS (7)
  1. EXFORGE [Suspect]
     Dosage: 160/10 MG, UNK
     Route: 048
     Dates: start: 20090508
  2. ARICEPT [Concomitant]
  3. AZO-SILIN [Concomitant]
  4. BITERAL [Concomitant]
  5. DEPREKS [Concomitant]
     Dosage: UNK
  6. GULTRIL [Concomitant]
     Dosage: 25 MG, UNK
  7. KEPPRA [Concomitant]
     Dosage: 500 MG, UNK

REACTIONS (2)
  - CARDIAC FAILURE [None]
  - RENAL FAILURE ACUTE [None]
